FAERS Safety Report 21781112 (Version 1)
Quarter: 2022Q4

REPORT INFORMATION
  Report Type: Spontaneous
  Country: IT (occurrence: IT)
  Receive Date: 20221227
  Receipt Date: 20221227
  Transmission Date: 20230112
  Serious: Yes (Other)
  Sender: FDA-Public Use
  Company Number: None

PATIENT
  Age: 65 Year
  Sex: Male
  Weight: 83 kg

DRUGS (4)
  1. PEMETREXED [Suspect]
     Active Substance: PEMETREXED
     Indication: Lung adenocarcinoma
     Dosage: DOSAGGIO: 1000?UNITA DI MISURA: MILLIGRAMMI?DOSAGE: 1000?UNIT OF MEASURE: MILLIGRAMS
  2. IPILIMUMAB [Suspect]
     Active Substance: IPILIMUMAB
     Indication: Lung adenocarcinoma
     Dosage: DOSAGGIO: 83?UNITA DI MISURA: MILLIGRAMMI?DOSAGE: 83?UNIT OF MEASURE: MILLIGRAMS
  3. CARBOPLATIN [Suspect]
     Active Substance: CARBOPLATIN
     Indication: Lung adenocarcinoma
     Dosage: DOSAGGIO: 670?UNITA DI MISURA: MILLIGRAMMI?DOSAGE: 670?UNIT OF MEASURE: MILLIGRAMS
  4. NIVOLUMAB [Suspect]
     Active Substance: NIVOLUMAB
     Indication: Lung adenocarcinoma
     Dosage: DOSAGGIO: 360?UNITA DI MISURA: MILLIGRAMMI?DOSAGE: 360?UNIT OF MEASURE: MILLIGRAMS

REACTIONS (1)
  - Pancreatic toxicity [Unknown]

NARRATIVE: CASE EVENT DATE: 20221121
